FAERS Safety Report 10073315 (Version 1)
Quarter: 2014Q2

REPORT INFORMATION
  Report Type: Report from Study
  Country: CA (occurrence: CA)
  Receive Date: 20140411
  Receipt Date: 20140411
  Transmission Date: 20141212
  Serious: Yes (Hospitalization)
  Sender: FDA-Public Use
  Company Number: CA-JNJFOC-20140404860

PATIENT
  Age: 57 Year
  Sex: Female
  Weight: 77.8 kg

DRUGS (2)
  1. STELARA [Suspect]
     Indication: PSORIASIS
     Route: 058
     Dates: start: 200603, end: 201011
  2. STELARA [Suspect]
     Indication: PSORIASIS
     Route: 058
     Dates: start: 201305

REACTIONS (1)
  - Appendicitis perforated [Recovered/Resolved]
